FAERS Safety Report 21278394 (Version 1)
Quarter: 2022Q3

REPORT INFORMATION
  Report Type: Spontaneous
  Country: US (occurrence: US)
  Receive Date: 20220831
  Receipt Date: 20220831
  Transmission Date: 20221027
  Serious: No
  Sender: FDA-Public Use
  Company Number: US-JNJFOC-20220854444

PATIENT

DRUGS (5)
  1. UPTRAVI [Suspect]
     Active Substance: SELEXIPAG
     Indication: Product used for unknown indication
     Route: 048
  2. REMODULIN [Concomitant]
     Active Substance: TREPROSTINIL
  3. TYVASO [Concomitant]
     Active Substance: TREPROSTINIL
  4. TREPROSTINIL [Concomitant]
     Active Substance: TREPROSTINIL
  5. UNITUXIN [Concomitant]
     Active Substance: DINUTUXIMAB

REACTIONS (2)
  - Headache [Unknown]
  - Pain in jaw [Unknown]
